FAERS Safety Report 21908753 (Version 1)
Quarter: 2023Q1

REPORT INFORMATION
  Report Type: Spontaneous
  Country: US (occurrence: US)
  Receive Date: 20230125
  Receipt Date: 20230125
  Transmission Date: 20230417
  Serious: Yes (Death, Life-Threatening, Hospitalization, Other)
  Sender: FDA-Public Use
  Company Number: US-JUBILANT CADISTA PHARMACEUTICALS-2023JUB00033

PATIENT
  Age: 16 Year
  Sex: Female

DRUGS (6)
  1. MYCOPHENOLATE MOFETIL [Suspect]
     Active Substance: MYCOPHENOLATE MOFETIL
     Indication: Immunosuppressant drug therapy
  2. PREDNISONE [Suspect]
     Active Substance: PREDNISONE
     Indication: Immunosuppressant drug therapy
     Dosage: UNK
  3. TACROLIMUS [Suspect]
     Active Substance: TACROLIMUS
     Indication: Immunosuppressant drug therapy
     Dosage: UNK
  4. EVEROLIMUS [Suspect]
     Active Substance: EVEROLIMUS
     Indication: Immunosuppressant drug therapy
     Dosage: UNK
  5. RITUXIMAB [Suspect]
     Active Substance: RITUXIMAB
     Indication: Glomerulonephritis membranoproliferative
     Dosage: 1 {DF} 1 TOTAL (CUMULATIVE DOSE2 {TOTAL}), AT THE AGE OF 20, 18 MONTHS, ANOTHER DOS
  6. RITUXIMAB [Suspect]
     Active Substance: RITUXIMAB
     Dosage: 1 {DF} 1 TOTAL, (CUMULATIVE DOSE2 {TOTAL}), ONE DOSE AT THE AGE OF 19

REACTIONS (2)
  - Soft tissue sarcoma [Fatal]
  - Epstein-Barr virus infection [Fatal]
